FAERS Safety Report 13077915 (Version 1)
Quarter: 2017Q1

REPORT INFORMATION
  Report Type: Spontaneous
  Country: US (occurrence: US)
  Receive Date: 20170102
  Receipt Date: 20170102
  Transmission Date: 20170428
  Serious: Yes (Death)
  Sender: FDA-Public Use
  Company Number: US-ROCHE-1874096

PATIENT
  Age: 24 Year
  Sex: Male
  Weight: 75 kg

DRUGS (48)
  1. ESBRIET [Suspect]
     Active Substance: PIRFENIDONE
     Indication: IDIOPATHIC PULMONARY FIBROSIS
     Dosage: REC^D 2 DOSES ON 14-DEC-2016
     Route: 048
     Dates: start: 20161214, end: 20161214
  2. DIURIL (UNITED STATES) [Concomitant]
     Route: 042
     Dates: start: 20161216, end: 20161226
  3. METHYLPREDNISOLONE. [Concomitant]
     Active Substance: METHYLPREDNISOLONE
     Route: 042
  4. INSULIN REGULAR [Concomitant]
     Active Substance: INSULIN NOS
     Dosage: 1 UNIT/ML
     Route: 042
     Dates: end: 20161226
  5. PAPAVERINE [Concomitant]
     Active Substance: PAPAVERINE
     Dosage: 2 ML/HR
     Route: 065
     Dates: end: 20161226
  6. CAMPATH [Concomitant]
     Active Substance: ALEMTUZUMAB
     Indication: GRAFT VERSUS HOST DISEASE
     Dosage: QOD
     Route: 058
     Dates: start: 20161216, end: 20161226
  7. ALTEPLASE [Concomitant]
     Active Substance: ALTEPLASE
     Dosage: ONCE
     Route: 065
  8. SODIUM POLYSTYRENE SULFONATE. [Concomitant]
     Active Substance: SODIUM POLYSTYRENE SULFONATE
     Dosage: (FOR DECANTING)
     Route: 065
  9. EPINEPHRINE. [Concomitant]
     Active Substance: EPINEPHRINE
     Dosage: IN D5W
     Route: 042
  10. LEVOPHED [Concomitant]
     Active Substance: NOREPINEPHRINE BITARTRATE
     Dosage: 0.08 MCG/KG/MIN
     Route: 042
     Dates: end: 20161226
  11. KAYEXALATE [Concomitant]
     Active Substance: SODIUM POLYSTYRENE SULFONATE
  12. MEROPENEM. [Concomitant]
     Active Substance: MEROPENEM
     Indication: INFECTION
     Route: 042
     Dates: start: 20161216, end: 20161226
  13. VANCOMYCIN [Concomitant]
     Active Substance: VANCOMYCIN
     Indication: INFECTION
     Route: 042
     Dates: start: 20161216, end: 20161226
  14. CELLCEPT [Concomitant]
     Active Substance: MYCOPHENOLATE MOFETIL\MYCOPHENOLATE MOFETIL HYDROCHLORIDE
     Dosage: 10 MG/ML IN D5W IV SOLUTION
     Route: 042
  15. FUROSEMIDE. [Concomitant]
     Active Substance: FUROSEMIDE
     Route: 042
  16. MEROPENEM. [Concomitant]
     Active Substance: MEROPENEM
     Route: 042
  17. POLYETHYLENE GLYCOL [Concomitant]
     Active Substance: POLYETHYLENE GLYCOLS
     Route: 050
  18. HYDROCORTISONE. [Concomitant]
     Active Substance: HYDROCORTISONE
  19. AZITHROMYCIN ANHYDROUS. [Concomitant]
     Active Substance: AZITHROMYCIN ANHYDROUS
     Indication: TRAUMATIC LUNG INJURY
     Dosage: ROUTE: NG
     Route: 065
     Dates: start: 20161130, end: 20161226
  20. MIDAZOLAM [Concomitant]
     Active Substance: MIDAZOLAM HYDROCHLORIDE
     Route: 042
  21. MORPHINE [Concomitant]
     Active Substance: MORPHINE
     Route: 042
  22. SODIUM BICARBONATE. [Concomitant]
     Active Substance: SODIUM BICARBONATE
     Route: 042
  23. VFEND [Concomitant]
     Active Substance: VORICONAZOLE
     Dosage: 5 MG/ML IN
     Route: 065
  24. SODIUM CHLORIDE. [Concomitant]
     Active Substance: SODIUM CHLORIDE
     Dosage: 1 ML/HR AT
     Route: 065
     Dates: start: 20161223
  25. HEPARIN W/SODIUM CHLORIDE [Concomitant]
     Dosage: 2 ML/HR
     Route: 065
     Dates: start: 20161223
  26. LIDOCAINE. [Concomitant]
     Active Substance: LIDOCAINE
     Dosage: WITH SOD BICARB
     Route: 065
  27. ALBUMIN HUMAN [Concomitant]
     Active Substance: ALBUMIN HUMAN
     Route: 042
  28. BUDESONIDE. [Concomitant]
     Active Substance: BUDESONIDE
     Route: 050
  29. EPOETIN ALFA [Concomitant]
     Active Substance: ERYTHROPOIETIN
     Dosage: 2,140 UNITS
     Route: 042
  30. PANTOPRAZOLE [Concomitant]
     Active Substance: PANTOPRAZOLE SODIUM
     Route: 042
  31. SULFAMETHOXAZOLE/TRIMETHOPRIM [Concomitant]
     Active Substance: SULFAMETHOXAZOLE\TRIMETHOPRIM
     Route: 050
  32. FENTANYL. [Concomitant]
     Active Substance: FENTANYL
     Indication: PAIN
     Dosage: 350MCG/HR, IV CONTINUOUS
     Route: 042
     Dates: start: 20161216, end: 20161226
  33. MIDAZOLAM [Concomitant]
     Active Substance: MIDAZOLAM HYDROCHLORIDE
     Route: 065
     Dates: end: 20161226
  34. FAT EMULSION NOS [Concomitant]
     Active Substance: EGG PHOSPHOLIPIDS\SAFFLOWER OIL\SOYBEAN OIL
     Dosage: 15.7 ML/HR
     Route: 065
     Dates: end: 20161226
  35. DEXTROSE. [Concomitant]
     Active Substance: DEXTROSE
     Route: 042
  36. DEXTROSE. [Concomitant]
     Active Substance: DEXTROSE
     Dosage: 30 ML/HR
     Route: 065
     Dates: start: 20161226
  37. DEXTROSE. [Concomitant]
     Active Substance: DEXTROSE
     Dosage: 30 ML/HR + CUSTOM ADDITIVES
     Route: 065
     Dates: start: 20161226
  38. ERGOCALCIFEROL. [Concomitant]
     Active Substance: ERGOCALCIFEROL
     Dosage: 50,000 UNITS
     Route: 050
  39. TACROLIMUS. [Concomitant]
     Active Substance: TACROLIMUS
     Route: 042
  40. ALBUTEROL. [Concomitant]
     Active Substance: ALBUTEROL
     Dosage: 10 MG/HR
     Route: 065
     Dates: end: 20161226
  41. ACETAMINOPHEN. [Concomitant]
     Active Substance: ACETAMINOPHEN
  42. FENTANYL. [Concomitant]
     Active Substance: FENTANYL
     Dosage: 1 PATCH
     Route: 062
  43. GABAPENTIN. [Concomitant]
     Active Substance: GABAPENTIN
     Route: 050
  44. CYTOVENE IV [Concomitant]
     Active Substance: GANCICLOVIR SODIUM
     Dosage: 5 MG/ML IN D5W DILUTION
     Route: 042
  45. PRECEDEX [Concomitant]
     Active Substance: DEXMEDETOMIDINE HYDROCHLORIDE
     Dosage: 1 MCG/KG/HR
     Route: 042
     Dates: end: 20161226
  46. DEXTROSE/SODIUM CHLORIDE [Concomitant]
     Dosage: 5% AND 0.9%
     Route: 065
     Dates: end: 20161218
  47. SODIUM CHLORIDE. [Concomitant]
     Active Substance: SODIUM CHLORIDE
     Dosage: 1 ML/HR AT
     Route: 065
     Dates: end: 20161226
  48. DIPHENHYDRAMINE. [Concomitant]
     Active Substance: DIPHENHYDRAMINE

REACTIONS (1)
  - Respiratory failure [Fatal]

NARRATIVE: CASE EVENT DATE: 20161215
